FAERS Safety Report 9202023 (Version 1)
Quarter: 2013Q2

REPORT INFORMATION
  Report Type: Spontaneous
  Country: GB (occurrence: GB)
  Receive Date: 20130401
  Receipt Date: 20130401
  Transmission Date: 20140414
  Serious: Yes (Death, Hospitalization)
  Sender: FDA-Public Use
  Company Number: GB-ROCHE-1208132

PATIENT
  Age: 53 Year
  Sex: Female
  Weight: 45 kg

DRUGS (5)
  1. GANCICLOVIR [Suspect]
     Indication: CYTOMEGALOVIRUS INFECTION
     Route: 042
     Dates: start: 20130220
  2. DALTEPARIN [Concomitant]
     Route: 058
  3. ESOMEPRAZOLE [Concomitant]
     Route: 042
  4. HYDROCORTISONE [Concomitant]
     Route: 042
  5. TAZOCIN [Concomitant]
     Indication: ABDOMINAL SEPSIS
     Route: 042

REACTIONS (1)
  - Thrombocytopenia [Fatal]
